FAERS Safety Report 8375892 (Version 2)
Quarter: 2013Q1

REPORT INFORMATION
  Report Type: Report from Study
  Country: US (occurrence: US)
  Receive Date: 20120129
  Receipt Date: 20130129
  Transmission Date: 20140127
  Serious: No
  Sender: FDA-Public Use
  Company Number: US-ABBOTT-11P-163-0883562-00

PATIENT
  Sex: Male

DRUGS (13)
  1. HUMIRA 40 MG/0.8 ML PEN [Suspect]
     Indication: CROHN^S DISEASE
     Route: 058
     Dates: start: 20111212, end: 20111212
  2. HUMIRA 40 MG/0.8 ML PEN [Suspect]
  3. CELLCEPT [Concomitant]
     Indication: RENAL TRANSPLANT
  4. PROGRAF [Concomitant]
     Indication: RENAL TRANSPLANT
  5. PREDNISONE [Concomitant]
     Indication: INFLAMMATION
     Dosage: QD
     Route: 048
  6. NEURONTIN [Concomitant]
     Indication: PARAESTHESIA
  7. COUMADIN [Concomitant]
     Indication: PRODUCT USED FOR UNKNOWN INDICATION
     Dosage: 2 PILLS TUES, SUN, AND 1 PILL ON MON
  8. SODIUM BICARBONATE [Concomitant]
     Indication: PRODUCT USED FOR UNKNOWN INDICATION
  9. PROTONIX [Concomitant]
     Indication: GASTROOESOPHAGEAL REFLUX DISEASE
  10. VIT D [Concomitant]
     Indication: VITAMIN SUPPLEMENTATION
  11. B VITAMIN COMP [Concomitant]
     Indication: VITAMIN SUPPLEMENTATION
  12. CALCIUM [Concomitant]
     Indication: MINERAL SUPPLEMENTATION
  13. MULTIVITAMIN [Concomitant]
     Indication: VITAMIN SUPPLEMENTATION

REACTIONS (7)
  - Erythema [Recovered/Resolved]
  - Ear discomfort [Recovered/Resolved]
  - Paraesthesia [Recovered/Resolved]
  - Therapeutic response unexpected [Unknown]
  - Hypoaesthesia [Unknown]
  - Pain in extremity [Unknown]
  - Gait disturbance [Unknown]
